FAERS Safety Report 6347454-1 (Version None)
Quarter: 2009Q3

REPORT INFORMATION
  Report Type: 
  Country: None (occurrence: None)
  Receive Date: 20090910
  Receipt Date: 20090901
  Transmission Date: 20100115
  Serious: Yes (Other)
  Sender: FDA-Public Use
  Company Number: US-ASTRAZENECA-2009UW14748

PATIENT
  Age: 74 Year
  Sex: Female

DRUGS (6)
  1. SYMBICORT [Suspect]
     Indication: ASTHMA
     Dosage: 160/4.5 UG ONE PUFF
     Route: 055
     Dates: start: 20090501
  2. SYMBICORT [Suspect]
     Dosage: 80/4.5 UG ONE PUFF
     Route: 055
  3. SYMBICORT [Suspect]
     Dosage: 80/4.5 UG TWO PUFF
     Route: 055
  4. TOPROL-XL [Concomitant]
     Indication: BLOOD PRESSURE
     Route: 048
  5. GLUCOSAMINE [Concomitant]
     Indication: OSTEOARTHRITIS
  6. MULTI-VITAMIN [Concomitant]

REACTIONS (4)
  - ASTHENIA [None]
  - CANDIDIASIS [None]
  - MUSCULAR WEAKNESS [None]
  - RENAL DISORDER [None]
